FAERS Safety Report 11616568 (Version 1)
Quarter: 2015Q4

REPORT INFORMATION
  Report Type: Spontaneous
  Country: FR (occurrence: GR)
  Receive Date: 20151009
  Receipt Date: 20151009
  Transmission Date: 20160304
  Serious: Yes (Hospitalization)
  Sender: FDA-Public Use
  Company Number: GR-FRI-1000080073

PATIENT
  Age: 66 Year
  Sex: Female

DRUGS (3)
  1. RISPERIDONE. [Concomitant]
     Active Substance: RISPERIDONE
     Route: 065
  2. ASENAPINE [Suspect]
     Active Substance: ASENAPINE
     Indication: SCHIZOAFFECTIVE DISORDER
     Dosage: 20 MG
     Route: 048
  3. ASENAPINE [Suspect]
     Active Substance: ASENAPINE
     Dosage: 10 MG
     Route: 048

REACTIONS (2)
  - Inappropriate antidiuretic hormone secretion [Recovered/Resolved]
  - Inappropriate schedule of drug administration [Not Recovered/Not Resolved]
